FAERS Safety Report 5850989-9 (Version None)
Quarter: 2008Q3

REPORT INFORMATION
  Report Type: 
  Country: None (occurrence: None)
  Receive Date: 20080820
  Receipt Date: 20080807
  Transmission Date: 20090109
  Serious: Yes (Other)
  Sender: FDA-Public Use
  Company Number: PHHO2008GB09692

PATIENT
  Sex: Female
  Weight: 116.8 kg

DRUGS (7)
  1. TASIGNA [Suspect]
     Indication: CHRONIC MYELOID LEUKAEMIA
     Dosage: 300 MG, BID
     Route: 048
     Dates: start: 20080625, end: 20080709
  2. TASIGNA [Suspect]
     Dosage: NO TREATMENT
     Dates: start: 20080710, end: 20080724
  3. TASIGNA [Suspect]
     Dosage: 300 MG, BID
     Route: 048
     Dates: start: 20080725, end: 20080806
  4. CLONAZEPAM [Concomitant]
     Indication: PERIPHERAL SENSORY NEUROPATHY
  5. EZETIMIBE [Concomitant]
     Indication: BLOOD CHOLESTEROL INCREASED
  6. GAVISCON [Concomitant]
     Indication: ABDOMINAL PAIN UPPER
  7. SUCRALFATE [Concomitant]

REACTIONS (2)
  - DYSPNOEA [None]
  - ELECTROCARDIOGRAM QT PROLONGED [None]
